FAERS Safety Report 18911097 (Version 2)
Quarter: 2021Q2

REPORT INFORMATION
  Report Type: Spontaneous
  Country: US (occurrence: US)
  Receive Date: 20210218
  Receipt Date: 20210614
  Transmission Date: 20210717
  Serious: No
  Sender: FDA-Public Use
  Company Number: US-PFIZER INC-2021143552

PATIENT
  Age: 67 Year
  Sex: Female

DRUGS (1)
  1. IBRANCE [Suspect]
     Active Substance: PALBOCICLIB
     Dosage: 100 MG

REACTIONS (6)
  - Crying [Unknown]
  - Depression [Unknown]
  - Lymphoedema [Unknown]
  - Fatigue [Unknown]
  - Psychiatric symptom [Unknown]
  - Somnolence [Unknown]
